FAERS Safety Report 5493077-6 (Version None)
Quarter: 2007Q4

REPORT INFORMATION
  Report Type: 
  Country: None (occurrence: None)
  Receive Date: 20071019
  Receipt Date: 20071009
  Transmission Date: 20080405
  Serious: Yes (Hospitalization)
  Sender: FDA-Public Use
  Company Number: TPA2007A02074

PATIENT
  Age: 76 Year
  Sex: Female
  Weight: 79.3795 kg

DRUGS (7)
  1. ACTOS [Suspect]
     Indication: TYPE 2 DIABETES MELLITUS
     Dosage: 1 IN 1 D, PER ORAL
     Route: 048
  2. INSULIN [Concomitant]
  3. COZAAR [Concomitant]
  4. NORVASC [Concomitant]
  5. ZOCOR [Concomitant]
  6. NEXIUM [Concomitant]
  7. METFORMIN HCL [Concomitant]

REACTIONS (4)
  - BARRETT'S OESOPHAGUS [None]
  - GASTRIC NEOPLASM [None]
  - HERNIA [None]
  - UPPER LIMB FRACTURE [None]
